FAERS Safety Report 14754490 (Version 1)
Quarter: 2018Q2

REPORT INFORMATION
  Report Type: Spontaneous
  Country: CO (occurrence: CO)
  Receive Date: 20180412
  Receipt Date: 20180412
  Transmission Date: 20180711
  Serious: Yes (Death)
  Sender: FDA-Public Use
  Company Number: CO-BAXTER-2018BAX010931

PATIENT
  Age: 78 Year
  Sex: Male

DRUGS (4)
  1. REMIFENTANIL [Suspect]
     Active Substance: REMIFENTANIL
     Indication: PRODUCT USED FOR UNKNOWN INDICATION
     Dosage: VIA A CANAL
     Route: 042
     Dates: start: 20180312, end: 20180312
  2. ETILEFRINE [Suspect]
     Active Substance: ETILEFRINE
     Indication: PRODUCT USED FOR UNKNOWN INDICATION
     Route: 042
     Dates: start: 20180312, end: 20180312
  3. NOREPINEPHRINE. [Suspect]
     Active Substance: NOREPINEPHRINE
     Indication: PRODUCT USED FOR UNKNOWN INDICATION
     Dosage: VIA C CANAL
     Route: 042
     Dates: start: 20180312, end: 20180312
  4. CLORURO DE SODIO 0.9% [Suspect]
     Active Substance: SODIUM CHLORIDE
     Indication: MEDICATION DILUTION
     Dosage: VIA B CANAL
     Route: 042
     Dates: start: 20180312, end: 20180312

REACTIONS (2)
  - Device issue [None]
  - Acute myocardial infarction [Fatal]

NARRATIVE: CASE EVENT DATE: 20180312
